FAERS Safety Report 7959210-9 (Version None)
Quarter: 2011Q4

REPORT INFORMATION
  Report Type: 
  Country: None (occurrence: None)
  Receive Date: 20111206
  Receipt Date: 20111129
  Transmission Date: 20120403
  Serious: Yes (Hospitalization)
  Sender: FDA-Public Use
  Company Number: FR-PFIZER INC-2011290328

PATIENT
  Age: 35 Year
  Sex: Female
  Weight: 44 kg

DRUGS (1)
  1. VFEND [Suspect]
     Indication: BRONCHOPULMONARY ASPERGILLOSIS
     Dosage: UNK
     Route: 048
     Dates: start: 20101201

REACTIONS (5)
  - MYALGIA [None]
  - PANCREATITIS [None]
  - PHOTOSENSITIVITY REACTION [None]
  - GAMMA-GLUTAMYLTRANSFERASE INCREASED [None]
  - CHOLECYSTECTOMY [None]
